FAERS Safety Report 9152962 (Version 1)
Quarter: 2013Q1

REPORT INFORMATION
  Report Type: Spontaneous
  Country: US (occurrence: US)
  Receive Date: 20130211
  Receipt Date: 20130211
  Transmission Date: 20140127
  Serious: Yes (Other)
  Sender: FDA-Public Use
  Company Number: US-RB-049459-13

PATIENT
  Age: 17 Year
  Sex: Female

DRUGS (3)
  1. DELSYM ADULT GRAPE [Suspect]
     Indication: DRUG ABUSE
     Route: 048
  2. GEODON [Concomitant]
     Indication: PRODUCT USED FOR UNKNOWN INDICATION
  3. REMERON [Concomitant]
     Indication: PRODUCT USED FOR UNKNOWN INDICATION

REACTIONS (1)
  - Drug abuse [Unknown]
